FAERS Safety Report 6207163-6 (Version None)
Quarter: 2009Q2

REPORT INFORMATION
  Report Type: 
  Country: None (occurrence: None)
  Receive Date: 20090528
  Receipt Date: 20081125
  Transmission Date: 20091009
  Serious: Yes (Other)
  Sender: FDA-Public Use
  Company Number: JP-PFIZER INC-2008092570

PATIENT
  Age: 13 Year
  Sex: Female

DRUGS (8)
  1. SOLU-MEDROL [Suspect]
     Route: 042
  2. PREDNISOLONE [Suspect]
     Dates: start: 20070101
  3. PERSANTINE [Suspect]
     Dates: start: 20070101
  4. BREDININ [Suspect]
     Dates: start: 20070101
  5. ACECOL [Suspect]
     Dates: start: 20070101
  6. MUCOSTA [Suspect]
     Dates: start: 20070101
  7. MAGNESIUM OXIDE [Suspect]
     Dates: start: 20080701
  8. HEPARIN [Suspect]
     Dates: start: 20080730, end: 20080801

REACTIONS (1)
  - CYSTITIS [None]
